FAERS Safety Report 6773947-9 (Version None)
Quarter: 2010Q2

REPORT INFORMATION
  Report Type: 
  Country: None (occurrence: None)
  Receive Date: 20100617
  Receipt Date: 20100609
  Transmission Date: 20101027
  Serious: Yes (Life-Threatening, Other)
  Sender: FDA-Public Use
  Company Number: PHHY2009DE57650

PATIENT
  Sex: Female
  Weight: 82 kg

DRUGS (9)
  1. ALISKIREN ALI+ [Suspect]
     Indication: HYPERTENSION
     Dosage: 150 MG, PER DAY
     Route: 048
     Dates: start: 20081121, end: 20090831
  2. FLUVASTATIN [Suspect]
     Indication: CORONARY ARTERY DISEASE
     Dosage: 80 MG, PER DAY
     Route: 048
     Dates: start: 20090128
  3. METOPROLOL [Concomitant]
     Dosage: 142.5 MG, PER DAY
     Route: 048
     Dates: start: 20090831
  4. PANTOPRAZOLE [Concomitant]
     Dosage: 40 MG, PER DAY
     Route: 048
     Dates: start: 20090128
  5. ASPIRIN [Concomitant]
     Dosage: 100 MG, PER DAY
     Route: 048
     Dates: start: 20041101
  6. RAMIPRIL [Concomitant]
     Dosage: 10 MG, PER DAY
     Route: 048
     Dates: start: 20080710
  7. TORSEMIDE [Concomitant]
     Dosage: 10 MG, PER DAY
     Route: 048
     Dates: start: 20090831
  8. AMANTADINE HCL [Concomitant]
     Dosage: 100 MG, PER DAY
     Route: 048
     Dates: start: 20090128
  9. SYMBICORT [Concomitant]
     Dosage: UNK
     Dates: start: 20090831

REACTIONS (5)
  - CORONARY ARTERY DISEASE [None]
  - CORONARY ARTERY OCCLUSION [None]
  - CORONARY ARTERY STENOSIS [None]
  - DIABETES MELLITUS [None]
  - VASCULAR GRAFT [None]
